FAERS Safety Report 6020796-5 (Version None)
Quarter: 2008Q4

REPORT INFORMATION
  Report Type: 
  Country: None (occurrence: None)
  Receive Date: 20081229
  Receipt Date: 20081218
  Transmission Date: 20090506
  Serious: Yes (Death)
  Sender: FDA-Public Use
  Company Number: US-JNJFOC-20081206110

PATIENT
  Age: 39 Year
  Sex: Female

DRUGS (9)
  1. FENTANYL-100 [Suspect]
     Indication: SUICIDE ATTEMPT
     Route: 048
  2. BENZODIAZEPINE [Suspect]
     Indication: SUICIDE ATTEMPT
     Route: 048
  3. CODEINE SUL TAB [Suspect]
     Indication: SUICIDE ATTEMPT
     Route: 048
  4. HYDROCODONE [Suspect]
     Indication: SUICIDE ATTEMPT
     Route: 048
  5. UNKNOWN ANTIPSYCHOTIC [Suspect]
     Indication: SUICIDE ATTEMPT
     Route: 048
  6. UNKNOWN DRUG [Suspect]
     Indication: SUICIDE ATTEMPT
     Route: 048
  7. METHOCARBAMOL [Suspect]
     Indication: SUICIDE ATTEMPT
     Route: 048
  8. ANTIHYPERLIPIDEMIC [Suspect]
     Indication: SUICIDE ATTEMPT
     Route: 048
  9. MARIJUANA [Suspect]
     Indication: SUICIDE ATTEMPT
     Route: 048

REACTIONS (2)
  - COMPLETED SUICIDE [None]
  - DRUG TOXICITY [None]
